FAERS Safety Report 10187621 (Version 1)
Quarter: 2014Q2

REPORT INFORMATION
  Report Type: Spontaneous
  Country: US (occurrence: US)
  Receive Date: 20140522
  Receipt Date: 20140522
  Transmission Date: 20141212
  Serious: No
  Sender: FDA-Public Use
  Company Number: US-SANOFI-AVENTIS-2013SA076876

PATIENT
  Age: 88 Year
  Sex: Male
  Weight: 99.79 kg

DRUGS (8)
  1. LANTUS [Suspect]
     Indication: DIABETES MELLITUS
     Dosage: DOSE:23 UNIT(S)
     Route: 058
  2. NOVOLOG [Concomitant]
  3. HUMALOG [Concomitant]
     Indication: DIABETES MELLITUS
     Route: 065
     Dates: start: 1976
  4. ASPIRIN [Concomitant]
     Indication: TRANSIENT ISCHAEMIC ATTACK
     Route: 065
     Dates: start: 2001
  5. ATORVASTATIN [Concomitant]
     Indication: BLOOD CHOLESTEROL
     Route: 065
     Dates: start: 2000
  6. VITAMIN B12 [Concomitant]
     Route: 065
  7. NAPROXEN [Concomitant]
     Indication: BACK PAIN
     Route: 065
  8. TYLENOL [Concomitant]
     Indication: BACK PAIN
     Route: 065
     Dates: start: 2010

REACTIONS (2)
  - Expired product administered [Unknown]
  - Drug ineffective [Unknown]
